FAERS Safety Report 5015205-9 (Version None)
Quarter: 2006Q2

REPORT INFORMATION
  Report Type: 
  Country: None (occurrence: None)
  Receive Date: 20060425
  Receipt Date: 20060327
  Transmission Date: 20061013
  Serious: Yes (Life-Threatening)
  Sender: FDA-Public Use
  Company Number: 217904

PATIENT
  Age: 56 Year
  Sex: Female

DRUGS (6)
  1. XOLAIR [Suspect]
     Indication: ASTHMA
     Dosage: 300 MG, Q2W, SUBCUTANEOUS
     Route: 058
     Dates: start: 20040617, end: 20050728
  2. SINGULAIR [Concomitant]
  3. XOPENEX [Concomitant]
  4. NEXIUM [Concomitant]
  5. ADVAIR DISKUS 100/50 [Concomitant]
  6. LEVOXYL [Concomitant]

REACTIONS (1)
  - ANAPHYLACTIC REACTION [None]
